FAERS Safety Report 24092734 (Version 2)
Quarter: 2024Q3

REPORT INFORMATION
  Report Type: Spontaneous
  Country: US (occurrence: US)
  Receive Date: 20240715
  Receipt Date: 20240718
  Transmission Date: 20241017
  Serious: No
  Sender: PFIZER
  Company Number: US-PFIZER INC-202400212667

PATIENT
  Age: 79 Year
  Sex: Female

DRUGS (1)
  1. NURTEC ODT [Suspect]
     Active Substance: RIMEGEPANT SULFATE
     Indication: Migraine
     Dosage: UNK

REACTIONS (7)
  - Hypersensitivity [Unknown]
  - Erythema [Unknown]
  - Flushing [Unknown]
  - Ear discomfort [Unknown]
  - Ear pruritus [Unknown]
  - Pruritus [Unknown]
  - Feeling hot [Unknown]
